FAERS Safety Report 7322810-3 (Version None)
Quarter: 2011Q1

REPORT INFORMATION
  Report Type: 
  Country: None (occurrence: None)
  Receive Date: 20110301
  Receipt Date: 20110215
  Transmission Date: 20110831
  Serious: Yes (Other)
  Sender: FDA-Public Use
  Company Number: US-JNJFOC-20110205382

PATIENT
  Age: 5 Decade
  Sex: Female

DRUGS (4)
  1. PREZISTA [Suspect]
     Indication: HIV INFECTION
     Route: 065
  2. TRUVADA [Concomitant]
     Indication: HIV INFECTION
  3. CIALIS [Concomitant]
     Indication: PULMONARY HYPERTENSION
  4. INTELENCE [Concomitant]
     Indication: HIV INFECTION

REACTIONS (6)
  - LIVER FUNCTION TEST ABNORMAL [None]
  - DRUG INEFFECTIVE [None]
  - JAUNDICE [None]
  - PULMONARY HYPERTENSION [None]
  - PRODUCT QUALITY ISSUE [None]
  - PAIN IN EXTREMITY [None]
